FAERS Safety Report 10391122 (Version 1)
Quarter: 2014Q3

REPORT INFORMATION
  Report Type: Spontaneous
  Country: ES (occurrence: ES)
  Receive Date: 20140818
  Receipt Date: 20140818
  Transmission Date: 20150326
  Serious: Yes (Other)
  Sender: FDA-Public Use
  Company Number: ES-GLAXOSMITHKLINE-B1024092A

PATIENT
  Sex: Female

DRUGS (1)
  1. REVOLADE [Suspect]
     Active Substance: ELTROMBOPAG
     Indication: HEPATITIS C
     Route: 048

REACTIONS (4)
  - Pulmonary thrombosis [Unknown]
  - Deep vein thrombosis [Unknown]
  - Dizziness [Unknown]
  - Chest pain [Unknown]
